FAERS Safety Report 6675599-5 (Version None)
Quarter: 2010Q2

REPORT INFORMATION
  Report Type: 
  Country: None (occurrence: None)
  Receive Date: 20100409
  Receipt Date: 20100407
  Transmission Date: 20101027
  Serious: Yes (Death, Other)
  Sender: FDA-Public Use
  Company Number: PHHY2010JP15257

PATIENT
  Age: 70 Year
  Sex: Female

DRUGS (4)
  1. NEORAL [Suspect]
     Indication: COELIAC DISEASE
     Dosage: UNK
     Route: 048
     Dates: start: 20100216
  2. NEORAL [Suspect]
     Indication: GASTROINTESTINAL NEOPLASM
  3. NEORAL [Suspect]
     Indication: AUTOIMMUNE DISORDER
  4. SANDIMMUNE [Concomitant]
     Indication: COELIAC DISEASE
     Dosage: UNK
     Dates: start: 20100204, end: 20100215

REACTIONS (3)
  - EPSTEIN-BARR VIRUS ASSOCIATED LYMPHOPROLIFERATIVE DISORDER [None]
  - ILEUS [None]
  - LYMPHOMA [None]
